FAERS Safety Report 15326760 (Version 1)
Quarter: 2018Q3

REPORT INFORMATION
  Report Type: Spontaneous
  Country: US (occurrence: US)
  Receive Date: 20180828
  Receipt Date: 20180828
  Transmission Date: 20181010
  Serious: No
  Sender: FDA-Public Use
  Company Number: US-AMAG PHARMACEUTICALS, INC.-AMAG201804018

PATIENT
  Sex: Female

DRUGS (2)
  1. INTRAROSA [Suspect]
     Active Substance: PRASTERONE
     Indication: HOT FLUSH
  2. INTRAROSA [Suspect]
     Active Substance: PRASTERONE
     Indication: LIBIDO DECREASED
     Dosage: UNK
     Route: 067
     Dates: start: 201807

REACTIONS (3)
  - Muscle spasms [Not Recovered/Not Resolved]
  - Diarrhoea [Not Recovered/Not Resolved]
  - Off label use [Unknown]

NARRATIVE: CASE EVENT DATE: 201807
